FAERS Safety Report 19030932 (Version 1)
Quarter: 2021Q1

REPORT INFORMATION
  Report Type: Spontaneous
  Country: US (occurrence: US)
  Receive Date: 20210318
  Receipt Date: 20210318
  Transmission Date: 20210420
  Serious: Yes (Hospitalization)
  Sender: FDA-Public Use
  Company Number: None

PATIENT
  Age: 50 Year
  Sex: Male

DRUGS (6)
  1. PREVYMIS [Suspect]
     Active Substance: LETERMOVIR
     Indication: ACUTE MYELOID LEUKAEMIA
     Route: 048
     Dates: start: 20210219
  2. URSODIOL. [Concomitant]
     Active Substance: URSODIOL
  3. CYCLOSERINE. [Concomitant]
     Active Substance: CYCLOSERINE
  4. PREDNISONE. [Concomitant]
     Active Substance: PREDNISONE
  5. FLUCONAZOLE. [Concomitant]
     Active Substance: FLUCONAZOLE
  6. ACYCLOVIR. [Concomitant]
     Active Substance: ACYCLOVIR

REACTIONS (1)
  - Hospitalisation [None]

NARRATIVE: CASE EVENT DATE: 202103
